FAERS Safety Report 9727948 (Version 1)
Quarter: 2013Q4

REPORT INFORMATION
  Report Type: Spontaneous
  Country: FR (occurrence: FR)
  Receive Date: 20131204
  Receipt Date: 20131204
  Transmission Date: 20140711
  Serious: Yes (Hospitalization)
  Sender: FDA-Public Use
  Company Number: FR-009507513-1311FRA010421

PATIENT
  Age: 34 Year
  Sex: Female

DRUGS (3)
  1. GONADOTROPHINE CHORIONIQUE ENDO 5000 UI/1ML [Suspect]
     Indication: IN VITRO FERTILISATION
     Dosage: 10000 IU, ONCE
     Route: 030
     Dates: start: 20121109
  2. DECAPEPTYL (TRIPTORELIN ACETATE) [Suspect]
     Indication: IN VITRO FERTILISATION
     Dosage: 0.25 DF, QD
     Route: 058
     Dates: start: 20121019, end: 20121108
  3. MENOPUR [Suspect]
     Indication: IN VITRO FERTILISATION
     Dosage: 225 IU, QD
     Route: 058
     Dates: start: 20121030, end: 20121107

REACTIONS (2)
  - Haematocrit increased [Recovered/Resolved]
  - Ovarian hyperstimulation syndrome [Recovered/Resolved]
